FAERS Safety Report 20614495 (Version 1)
Quarter: 2022Q1

REPORT INFORMATION
  Report Type: Spontaneous
  Country: FR (occurrence: FR)
  Receive Date: 20220321
  Receipt Date: 20220321
  Transmission Date: 20220424
  Serious: Yes (Hospitalization, Other)
  Sender: FDA-Public Use
  Company Number: FR-AFSSAPS-MP20218622

PATIENT
  Age: 1 Year
  Sex: Male
  Weight: 11.52 kg

DRUGS (4)
  1. AMOXICILLIN [Suspect]
     Active Substance: AMOXICILLIN
     Indication: Diarrhoea infectious
     Dosage: UNK
     Route: 065
     Dates: start: 20211101, end: 20211102
  2. CEFTRIAXONE SODIUM [Suspect]
     Active Substance: CEFTRIAXONE SODIUM
     Indication: Diarrhoea infectious
     Dosage: UNK
     Route: 065
     Dates: start: 20211102, end: 20211103
  3. MALARONE [Suspect]
     Active Substance: ATOVAQUONE\PROGUANIL HYDROCHLORIDE
     Indication: Malaria prophylaxis
     Dosage: UNK
     Route: 048
     Dates: start: 20211023, end: 20211025
  4. CIPROFLOXACIN HYDROCHLORIDE [Concomitant]
     Active Substance: CIPROFLOXACIN HYDROCHLORIDE
     Indication: Typhoid fever
     Dosage: UNK
     Route: 065
     Dates: start: 20211103, end: 20211108

REACTIONS (1)
  - Agranulocytosis [Recovering/Resolving]

NARRATIVE: CASE EVENT DATE: 20211103
